FAERS Safety Report 22021812 (Version 1)
Quarter: 2023Q1

REPORT INFORMATION
  Report Type: Spontaneous
  Country: US (occurrence: US)
  Receive Date: 20230222
  Receipt Date: 20230222
  Transmission Date: 20230417
  Serious: No
  Sender: FDA-Public Use
  Company Number: US-JNJFOC-20230244346

PATIENT
  Age: 17 Year
  Sex: Male

DRUGS (3)
  1. RISPERDAL [Suspect]
     Active Substance: RISPERIDONE
     Indication: Bipolar I disorder
     Dosage: 0.5 TABLET BY ORAL ONE TIME PER DAY IN MORNING AND ONE TABLET BY ORAL ROUTE AT BEDTIME
     Route: 048
     Dates: start: 201602, end: 201604
  2. RISPERDAL [Suspect]
     Active Substance: RISPERIDONE
     Indication: Irritability
  3. SEROQUEL [Concomitant]
     Active Substance: QUETIAPINE FUMARATE
     Indication: Product used for unknown indication
     Route: 048

REACTIONS (1)
  - Gynaecomastia [Unknown]

NARRATIVE: CASE EVENT DATE: 20160301
